FAERS Safety Report 21287136 (Version 10)
Quarter: 2022Q4

REPORT INFORMATION
  Report Type: Report from Study
  Country: CN (occurrence: CN)
  Receive Date: 20220902
  Receipt Date: 20221216
  Transmission Date: 20230112
  Serious: Yes (Hospitalization)
  Sender: FDA-Public Use
  Company Number: CN-JNJFOC-20220859568

PATIENT
  Age: 67 Year
  Sex: Male
  Weight: 72 kg

DRUGS (31)
  1. AMIVANTAMAB [Suspect]
     Active Substance: AMIVANTAMAB
     Indication: Non-small cell lung cancer
     Dosage: 1050 MG ON 19-AUG-2022 (C1D2), AND THEN 1400 MG ON 25-AUG-2022, 01-SEP-2022 (C1D15), AND 16-SEP-2022
     Route: 042
     Dates: start: 20220818
  2. AMIVANTAMAB [Suspect]
     Active Substance: AMIVANTAMAB
     Dosage: D2
     Route: 042
     Dates: start: 20220819
  3. AMIVANTAMAB [Suspect]
     Active Substance: AMIVANTAMAB
     Dosage: C1D8, ADDITIONAL DOSE ON 01-SEP-2022 (C1, D15),  WITH MOST RECENT DOSE 16-SEP-2022 (C2, D1)
     Route: 042
     Dates: start: 20220825
  4. AMIVANTAMAB [Suspect]
     Active Substance: AMIVANTAMAB
     Dosage: RESTART OF D1
     Route: 042
     Dates: start: 20221103
  5. CARBOPLATIN [Suspect]
     Active Substance: CARBOPLATIN
     Indication: Non-small cell lung cancer
     Dosage: DOSE ALSO REPORTED AS 450 MG Q 3 WEEKS
     Route: 065
     Dates: start: 20220818
  6. CARBOPLATIN [Suspect]
     Active Substance: CARBOPLATIN
     Route: 065
     Dates: start: 20221103
  7. PEMETREXED [Suspect]
     Active Substance: PEMETREXED
     Indication: Non-small cell lung cancer
     Dosage: DOSE ALSO REPORTED AS 680 MG Q 3 WEEKS
     Route: 065
     Dates: start: 20220818
  8. PEMETREXED [Suspect]
     Active Substance: PEMETREXED
     Route: 065
     Dates: start: 20221103
  9. NIFEDIPINE [Concomitant]
     Active Substance: NIFEDIPINE
     Indication: Hypertension
     Route: 048
     Dates: start: 19950101
  10. METOPROLOL TARTRATE [Concomitant]
     Active Substance: METOPROLOL TARTRATE
     Indication: Hypertension
     Route: 048
     Dates: start: 19950101, end: 20220908
  11. VALSARTAN [Concomitant]
     Active Substance: VALSARTAN
     Indication: Hypertension
     Route: 048
     Dates: start: 19950101
  12. ROSUVASTATIN CALCIUM [Concomitant]
     Active Substance: ROSUVASTATIN CALCIUM
     Indication: Hyperlipidaemia
     Route: 048
     Dates: start: 19950101
  13. ASPIRIN [Concomitant]
     Active Substance: ASPIRIN
     Indication: Hyperlipidaemia
     Route: 048
     Dates: start: 20220101
  14. VOGLIBOSE [Concomitant]
     Active Substance: VOGLIBOSE
     Indication: Hyperlipidaemia
     Dosage: 1 DOSAGE FORM
     Route: 048
     Dates: start: 19950101
  15. VOGLIBOSE [Concomitant]
     Active Substance: VOGLIBOSE
     Indication: Hyperglycaemia
  16. METFORMIN\SITAGLIPTIN [Concomitant]
     Active Substance: METFORMIN\SITAGLIPTIN
     Indication: Hyperglycaemia
     Route: 048
  17. METFORMIN\SITAGLIPTIN [Concomitant]
     Active Substance: METFORMIN\SITAGLIPTIN
     Route: 048
     Dates: start: 19950101
  18. NATEGLINIDE [Concomitant]
     Active Substance: NATEGLINIDE
     Indication: Hyperglycaemia
     Route: 048
  19. NATEGLINIDE [Concomitant]
     Active Substance: NATEGLINIDE
     Route: 048
     Dates: start: 19950101
  20. METOPROLOL SUCCINATE [Concomitant]
     Active Substance: METOPROLOL SUCCINATE
     Indication: Atrial fibrillation
     Route: 048
  21. DEXAMETHASONE ACETATE [Concomitant]
     Active Substance: DEXAMETHASONE ACETATE
     Indication: Prophylaxis
     Route: 048
     Dates: start: 20220817, end: 20220819
  22. VITAMIN B12 [Concomitant]
     Active Substance: CYANOCOBALAMIN
     Indication: Prophylactic chemotherapy
     Route: 030
     Dates: start: 20220818, end: 20220818
  23. DEXAMETHASONE SODIUM PHOSPHATE [Concomitant]
     Active Substance: DEXAMETHASONE SODIUM PHOSPHATE
     Indication: Chemotherapy side effect prophylaxis
     Route: 042
     Dates: start: 20220818, end: 20220819
  24. FAMOTIDINE [Concomitant]
     Active Substance: FAMOTIDINE
     Indication: Premedication
     Route: 042
     Dates: start: 20220818, end: 20220819
  25. DIPHENHYDRAMINE HYDROCHLORIDE [Concomitant]
     Active Substance: DIPHENHYDRAMINE HYDROCHLORIDE
     Indication: Premedication
     Route: 030
     Dates: start: 20220818, end: 20220819
  26. ACETAMINOPHEN\PROMETHAZINE HYDROCHLORIDE [Concomitant]
     Active Substance: ACETAMINOPHEN\PROMETHAZINE HYDROCHLORIDE
     Indication: Premedication
     Route: 048
     Dates: start: 20220818, end: 20220819
  27. TROPISETRON HYDROCHLORIDE [Concomitant]
     Active Substance: TROPISETRON HYDROCHLORIDE
     Indication: Prophylaxis of nausea and vomiting
     Route: 042
     Dates: start: 20220818, end: 20220819
  28. APREPITANT [Concomitant]
     Active Substance: APREPITANT
     Indication: Prophylaxis of nausea and vomiting
     Route: 048
     Dates: start: 20220818, end: 20220820
  29. MONTMORILLONITE [Concomitant]
     Active Substance: MONTMORILLONITE
     Indication: Diarrhoea
     Route: 048
     Dates: start: 20220822, end: 20220824
  30. POTASSIUM CHLORIDE [Concomitant]
     Active Substance: POTASSIUM CHLORIDE
     Indication: Prophylaxis
     Route: 042
     Dates: start: 20220825, end: 20220825
  31. INSULIN NOS [Concomitant]
     Active Substance: INSULIN NOS
     Indication: Blood glucose increased
     Dosage: DOSAGE 6
     Route: 058
     Dates: start: 20220825, end: 20220825

REACTIONS (4)
  - Myelosuppression [Not Recovered/Not Resolved]
  - Myelosuppression [Recovering/Resolving]
  - Hypoalbuminaemia [Not Recovered/Not Resolved]
  - Hypoproteinaemia [Not Recovered/Not Resolved]

NARRATIVE: CASE EVENT DATE: 20220826
